FAERS Safety Report 14013021 (Version 1)
Quarter: 2017Q3

REPORT INFORMATION
  Report Type: Spontaneous
  Country: BR (occurrence: BR)
  Receive Date: 20170926
  Receipt Date: 20170926
  Transmission Date: 20171128
  Serious: Yes (Other)
  Sender: FDA-Public Use
  Company Number: BR-PFIZER INC-2017406993

PATIENT
  Age: 77 Year
  Sex: Female

DRUGS (2)
  1. XALATAN [Suspect]
     Active Substance: LATANOPROST
     Indication: GLAUCOMA
     Dosage: 1 DROP AT NIGHT
  2. XALATAN [Suspect]
     Active Substance: LATANOPROST
     Indication: CATARACT

REACTIONS (3)
  - Cataract [Unknown]
  - Glaucoma [Unknown]
  - Condition aggravated [Unknown]
